FAERS Safety Report 8269373-6 (Version None)
Quarter: 2012Q2

REPORT INFORMATION
  Report Type: 
  Country: None (occurrence: None)
  Receive Date: 20120409
  Receipt Date: 20120402
  Transmission Date: 20120825
  Serious: Yes (Hospitalization, Other)
  Sender: FDA-Public Use
  Company Number: US-FRI-1000029504

PATIENT
  Age: 62 Year
  Sex: Male

DRUGS (10)
  1. AMITRIPTYLENE [Concomitant]
  2. DURAGESIC-100 [Concomitant]
     Indication: PAIN
  3. OMEPRAZOLE [Concomitant]
     Indication: GASTROOESOPHAGEAL REFLUX DISEASE
  4. JALYN [Concomitant]
     Indication: BENIGN PROSTATIC HYPERPLASIA
  5. SINGULAIR [Concomitant]
     Indication: CHRONIC OBSTRUCTIVE PULMONARY DISEASE
  6. METOPROLOL TARTRATE [Concomitant]
  7. CYMBALTA [Concomitant]
     Indication: DEPRESSION
  8. ARAVA [Concomitant]
     Indication: RHEUMATOID ARTHRITIS
  9. XANAX [Concomitant]
  10. DALIRESP [Suspect]
     Indication: CHRONIC OBSTRUCTIVE PULMONARY DISEASE
     Dosage: 500 MCG
     Route: 048
     Dates: start: 20120202

REACTIONS (4)
  - CHRONIC OBSTRUCTIVE PULMONARY DISEASE [None]
  - PNEUMONIA [None]
  - ACUTE PSYCHOSIS [None]
  - BRONCHITIS [None]
